FAERS Safety Report 7581832 (Version 3)
Quarter: 2018Q2

REPORT INFORMATION
  Report Type: Spontaneous
  Country: SE (occurrence: SE)
  Receive Date: 20100913
  Receipt Date: 20180608
  Transmission Date: 20180711
  Serious: Yes (Death, Other)
  Sender: FDA-Public Use
  Company Number: SE-RANBAXY-2010RR-38029

PATIENT
  Age: 23 Year
  Sex: Male

DRUGS (5)
  1. PARACETAMOL [Suspect]
     Active Substance: ACETAMINOPHEN
  2. SODIUM OXYBATE. [Suspect]
     Active Substance: SODIUM OXYBATE
  3. CODEINE [Suspect]
     Active Substance: CODEINE
  4. COCAINE [Suspect]
     Active Substance: COCAINE
  5. DIAZEPAM. [Suspect]
     Active Substance: DIAZEPAM

REACTIONS (3)
  - Drug abuse [Fatal]
  - Death [Fatal]
  - Overdose [Fatal]
